FAERS Safety Report 15846482 (Version 2)
Quarter: 2019Q3

REPORT INFORMATION
  Report Type: Spontaneous
  Country: US (occurrence: US)
  Receive Date: 20190120
  Receipt Date: 20190716
  Transmission Date: 20191004
  Serious: Yes (Other)
  Sender: FDA-Public Use
  Company Number: US-SUN PHARMACEUTICAL INDUSTRIES LTD-2019R1-196189

PATIENT
  Age: 34 Year
  Sex: Female

DRUGS (6)
  1. TRIAMCINOLONE [Suspect]
     Active Substance: TRIAMCINOLONE
     Indication: RASH
  2. BETAMETHASONE. [Suspect]
     Active Substance: BETAMETHASONE
     Indication: SKIN EXFOLIATION
     Dosage: UNK
     Route: 061
  3. HYDROCORTISONE. [Suspect]
     Active Substance: HYDROCORTISONE
     Indication: SKIN EXFOLIATION
     Dosage: UNK
     Route: 061
  4. TRIAMCINOLONE [Suspect]
     Active Substance: TRIAMCINOLONE
     Indication: SKIN EXFOLIATION
     Dosage: UNK
     Route: 061
  5. BETAMETHASONE. [Suspect]
     Active Substance: BETAMETHASONE
     Indication: RASH
  6. HYDROCORTISONE. [Suspect]
     Active Substance: HYDROCORTISONE
     Indication: RASH

REACTIONS (5)
  - Drug dependence [Unknown]
  - Steroid withdrawal syndrome [Unknown]
  - Perioral dermatitis [Recovered/Resolved]
  - Mental disorder [Unknown]
  - Intentional product misuse [Unknown]
